FAERS Safety Report 7803796-1 (Version None)
Quarter: 2011Q4

REPORT INFORMATION
  Report Type: 
  Country: None (occurrence: None)
  Receive Date: 20111010
  Receipt Date: 20110930
  Transmission Date: 20120403
  Serious: Yes (Other)
  Sender: FDA-Public Use
  Company Number: US-ELI_LILLY_AND_COMPANY-US201108000784

PATIENT
  Age: 35 Year
  Sex: Female

DRUGS (2)
  1. LIPID MODIFYING AGENTS [Concomitant]
     Dosage: UNK
  2. BYETTA [Suspect]
     Indication: TYPE 2 DIABETES MELLITUS
     Dosage: 10 UG, BID
     Route: 058
     Dates: start: 20070101, end: 20070101

REACTIONS (1)
  - PANCREATITIS [None]
